FAERS Safety Report 8323160-9 (Version None)
Quarter: 2012Q1

REPORT INFORMATION
  Report Type: 
  Country: None (occurrence: None)
  Receive Date: 20120315
  Receipt Date: 20110406
  Transmission Date: 20120608
  Serious: No
  Sender: FDA-Public Use
  Company Number: PHHY2011US23677

PATIENT
  Age: 49 Year
  Sex: Female

DRUGS (7)
  1. GABAPENTIN [Concomitant]
  2. PAXIL [Concomitant]
  3. OMEPRAZOLE [Concomitant]
  4. METFORMIN HCL [Concomitant]
  5. PROVIGIL [Concomitant]
  6. GILENYA [Suspect]
     Indication: MULTIPLE SCLEROSIS
     Dosage: 0.5 MG, QD, ORAL
     Route: 048
     Dates: start: 20110317
  7. MIRAPEX [Concomitant]

REACTIONS (2)
  - HEADACHE [None]
  - MOUTH ULCERATION [None]
